APPROVED DRUG PRODUCT: METIMYD
Active Ingredient: PREDNISOLONE ACETATE; SULFACETAMIDE SODIUM
Strength: 0.5%;10%
Dosage Form/Route: OINTMENT;OPHTHALMIC
Application: N010210 | Product #002
Applicant: SCHERING CORP SUB SCHERING PLOUGH CORP
Approved: Sep 9, 1984 | RLD: No | RS: No | Type: DISCN